FAERS Safety Report 6592585-4 (Version None)
Quarter: 2010Q1

REPORT INFORMATION
  Report Type: 
  Country: None (occurrence: None)
  Receive Date: 20100221
  Receipt Date: 20091027
  Transmission Date: 20100710
  Serious: No
  Sender: FDA-Public Use
  Company Number: US-ALLERGAN-0914880US

PATIENT
  Age: 33 Year
  Sex: Female

DRUGS (1)
  1. BOTOX COSMETIC [Suspect]
     Indication: SKIN WRINKLING
     Dosage: 25 UNITS, SINGLE
     Route: 030
     Dates: start: 20091001, end: 20091001

REACTIONS (7)
  - DIZZINESS [None]
  - DYSPHAGIA [None]
  - EYELID SENSORY DISORDER [None]
  - MIGRAINE [None]
  - MUSCULOSKELETAL PAIN [None]
  - NECK PAIN [None]
  - VISION BLURRED [None]
